FAERS Safety Report 4477430-5 (Version None)
Quarter: 2004Q3

REPORT INFORMATION
  Report Type: 
  Country: None (occurrence: None)
  Receive Date: 20040923
  Receipt Date: 20040802
  Transmission Date: 20050211
  Serious: No
  Sender: FDA-Public Use
  Company Number: USA040874295

PATIENT
  Age: 78 Year
  Sex: Female
  Weight: 83 kg

DRUGS (3)
  1. FORTEO [Suspect]
     Indication: OSTEOPOROSIS
     Dates: start: 20040426
  2. LEVOXYL [Concomitant]
  3. PAXIL [Concomitant]

REACTIONS (1)
  - WEIGHT INCREASED [None]
